FAERS Safety Report 17361068 (Version 1)
Quarter: 2020Q1

REPORT INFORMATION
  Report Type: Spontaneous
  Country: US (occurrence: US)
  Receive Date: 20200117
  Receipt Date: 20200117
  Transmission Date: 20200409
  Serious: Yes (Life-Threatening, Hospitalization)
  Sender: FDA-Public Use
  Company Number: None

PATIENT
  Age: 14 Year
  Sex: Male
  Weight: 60.06 kg

DRUGS (2)
  1. EPIDUO CREAM [Concomitant]
  2. BACTRIM [Suspect]
     Active Substance: SULFAMETHOXAZOLE\TRIMETHOPRIM
     Indication: ACNE
     Route: 048
     Dates: start: 20131101, end: 20131202

REACTIONS (17)
  - Malaise [None]
  - Fatigue [None]
  - Feeling cold [None]
  - Pyrexia [None]
  - Headache [None]
  - Liver function test increased [None]
  - Interstitial lung disease [None]
  - Procalcitonin decreased [None]
  - Nasopharyngitis [None]
  - Cough [None]
  - Vomiting [None]
  - Dyspnoea [None]
  - Chest X-ray abnormal [None]
  - Pulmonary mass [None]
  - Pulmonary granuloma [None]
  - Oxygen saturation decreased [None]
  - Pneumonia [None]

NARRATIVE: CASE EVENT DATE: 20131202
